FAERS Safety Report 6391451-7 (Version None)
Quarter: 2009Q4

REPORT INFORMATION
  Report Type: 
  Country: None (occurrence: None)
  Receive Date: 20091006
  Receipt Date: 20091006
  Transmission Date: 20100525
  Serious: No
  Sender: FDA-Public Use
  Company Number: None

PATIENT
  Sex: Male
  Weight: 99.7913 kg

DRUGS (1)
  1. CEPHALEXIN [Suspect]
     Indication: POST PROCEDURAL INFECTION
     Dosage: 2 CAPSULES EVERY 6 HOURS PO
     Route: 048
     Dates: start: 20091001, end: 20091005

REACTIONS (2)
  - HYPERHIDROSIS [None]
  - PRODUCT SUBSTITUTION ISSUE [None]
